FAERS Safety Report 18958339 (Version 1)
Quarter: 2021Q1

REPORT INFORMATION
  Report Type: Report from Study
  Country: DE (occurrence: DE)
  Receive Date: 20210302
  Receipt Date: 20210302
  Transmission Date: 20210420
  Serious: Yes (Other)
  Sender: FDA-Public Use
  Company Number: DE-MYLANLABS-2021M1012641

PATIENT
  Sex: Female

DRUGS (5)
  1. DORZOLAMIDE HYDROCHLORIDE/TIMOLOL [Suspect]
     Active Substance: DORZOLAMIDE HYDROCHLORIDE\TIMOLOL MALEATE
     Indication: EXFOLIATION GLAUCOMA
     Route: 061
  2. TAFLUPROST [Suspect]
     Active Substance: TAFLUPROST
     Indication: EXFOLIATION GLAUCOMA
     Dosage: UNK
     Route: 061
  3. PILOCARPINE. [Suspect]
     Active Substance: PILOCARPINE
     Indication: EXFOLIATION GLAUCOMA
     Route: 065
  4. PREDNISOLONE. [Suspect]
     Active Substance: PREDNISOLONE
     Indication: EXFOLIATION GLAUCOMA
     Route: 065
  5. ALPHAGAN P [Suspect]
     Active Substance: BRIMONIDINE TARTRATE
     Indication: EXFOLIATION GLAUCOMA
     Dosage: DROPS
     Route: 061

REACTIONS (1)
  - Iridocyclitis [Recovered/Resolved]
